FAERS Safety Report 7372612-7 (Version None)
Quarter: 2011Q1

REPORT INFORMATION
  Report Type: 
  Country: None (occurrence: None)
  Receive Date: 20110315
  Receipt Date: 20110304
  Transmission Date: 20110831
  Serious: Yes (Other)
  Sender: FDA-Public Use
  Company Number: 028650

PATIENT
  Sex: Male
  Weight: 1.6 kg

DRUGS (1)
  1. XYZALL /01530201/ (XYZALL) [Suspect]
     Indication: RHINITIS ALLERGIC
     Dosage: (TRANSPLACENTAL)
     Route: 064
     Dates: start: 20100101, end: 20110107

REACTIONS (3)
  - MATERNAL DRUGS AFFECTING FOETUS [None]
  - SMALL FOR DATES BABY [None]
  - PREMATURE BABY [None]
